FAERS Safety Report 19943921 (Version 2)
Quarter: 2021Q4

REPORT INFORMATION
  Report Type: Spontaneous
  Country: RU (occurrence: RU)
  Receive Date: 20211011
  Receipt Date: 20211014
  Transmission Date: 20220303
  Serious: Yes (Hospitalization)
  Sender: FDA-Public Use
  Company Number: None

PATIENT
  Sex: Female

DRUGS (5)
  1. MEMANTINE [Suspect]
     Active Substance: MEMANTINE
     Indication: Cognitive disorder
     Dosage: 10 MG, QD
     Route: 048
     Dates: start: 20210909, end: 20210914
  2. ASPIRIN [Concomitant]
     Active Substance: ASPIRIN
     Indication: Coronary artery disease
     Dosage: 100 MG, QD
     Route: 048
     Dates: start: 2019, end: 20210914
  3. ATORVASTATIN [Concomitant]
     Active Substance: ATORVASTATIN
     Indication: Cerebral arteriosclerosis
     Dosage: 20 MG, QD
     Route: 048
     Dates: start: 2019, end: 20210914
  4. VALSARTAN [Concomitant]
     Active Substance: VALSARTAN
     Indication: Hypertensive heart disease
     Dosage: 40 MG, QD
     Route: 048
     Dates: start: 2016, end: 20210914
  5. METFORMIN [Concomitant]
     Active Substance: METFORMIN HYDROCHLORIDE
     Indication: Type 2 diabetes mellitus
     Dosage: 850 MG, QD
     Route: 048
     Dates: start: 20210312, end: 20210914

REACTIONS (4)
  - Spinal compression fracture [Unknown]
  - Spinal compression fracture [Unknown]
  - Fall [Unknown]
  - Off label use [Unknown]

NARRATIVE: CASE EVENT DATE: 20210914
